FAERS Safety Report 25845035 (Version 3)
Quarter: 2025Q4

REPORT INFORMATION
  Report Type: Report from Study
  Country: CO (occurrence: CO)
  Receive Date: 20250925
  Receipt Date: 20251016
  Transmission Date: 20260119
  Serious: Yes (Other)
  Sender: ALEXION PHARMACEUTICALS
  Company Number: CO-AstraZeneca-CH-00929372A

PATIENT
  Age: 34 Year
  Sex: Female
  Weight: 38 kg

DRUGS (1)
  1. OSIMERTINIB [Suspect]
     Active Substance: OSIMERTINIB
     Indication: Lung neoplasm malignant
     Dosage: 40 MILLIGRAM, QD
     Dates: start: 20250619

REACTIONS (16)
  - Mucosal inflammation [Recovering/Resolving]
  - Hypersensitivity [Not Recovered/Not Resolved]
  - Noninfective gingivitis [Recovering/Resolving]
  - Stomatitis [Recovering/Resolving]
  - Cheilitis [Recovering/Resolving]
  - Vulvovaginal inflammation [Recovering/Resolving]
  - Tongue ulceration [Recovering/Resolving]
  - CNS ventriculitis [Not Recovered/Not Resolved]
  - Vasculitis [Not Recovered/Not Resolved]
  - Pruritus [Not Recovered/Not Resolved]
  - Conjunctivitis [Not Recovered/Not Resolved]
  - Dysphagia [Not Recovered/Not Resolved]
  - Erythema [Not Recovered/Not Resolved]
  - Saliva altered [Not Recovered/Not Resolved]
  - Tongue discomfort [Not Recovered/Not Resolved]
  - Rash [Not Recovered/Not Resolved]

NARRATIVE: CASE EVENT DATE: 20250808
